FAERS Safety Report 5002605-6 (Version None)
Quarter: 2006Q2

REPORT INFORMATION
  Report Type: 
  Country: None (occurrence: None)
  Receive Date: 20060515
  Receipt Date: 20051019
  Transmission Date: 20061013
  Serious: Yes (Death, Hospitalization, Disabling, Other)
  Sender: FDA-Public Use
  Company Number: US-MERCK-0510USA07937

PATIENT
  Age: 68 Year
  Sex: Male
  Weight: 102 kg

DRUGS (5)
  1. VIOXX [Suspect]
     Indication: RHEUMATOID ARTHRITIS
     Route: 048
     Dates: start: 20001101, end: 20040930
  2. PREDNISONE [Concomitant]
     Route: 065
     Dates: start: 20000304
  3. PLAVIX [Concomitant]
     Indication: ANTICOAGULANT THERAPY
     Route: 065
     Dates: start: 20000207
  4. CELEXA [Concomitant]
     Indication: ANXIETY
     Route: 065
     Dates: start: 20000219
  5. PREVACID [Concomitant]
     Indication: GASTROOESOPHAGEAL REFLUX DISEASE
     Route: 065
     Dates: start: 20000131

REACTIONS (9)
  - CEREBROVASCULAR ACCIDENT [None]
  - DEATH [None]
  - DEMENTIA [None]
  - EYE DISORDER [None]
  - EYE INJURY [None]
  - HIP FRACTURE [None]
  - INSOMNIA [None]
  - MENTAL STATUS CHANGES [None]
  - REFRACTORY ANAEMIA [None]
